FAERS Safety Report 24121511 (Version 1)
Quarter: 2024Q3

REPORT INFORMATION
  Report Type: Spontaneous
  Country: US (occurrence: US)
  Receive Date: 20240722
  Receipt Date: 20240722
  Transmission Date: 20241016
  Serious: Yes (Other)
  Sender: SANOFI AVENTIS
  Company Number: US-SA-SAC20240718000666

PATIENT
  Age: 39 Year
  Sex: Female

DRUGS (1)
  1. DUPIXENT [Suspect]
     Active Substance: DUPILUMAB
     Indication: Dermatitis atopic
     Dosage: 300 MG, QOW
     Route: 058
     Dates: start: 202208, end: 202303

REACTIONS (9)
  - Transplant rejection [Recovered/Resolved]
  - Lacrimation increased [Recovered/Resolved]
  - Photophobia [Recovered/Resolved]
  - Eyelid oedema [Recovered/Resolved]
  - Conjunctival papillae [Recovered/Resolved]
  - Visual impairment [Recovered/Resolved]
  - Ocular hyperaemia [Recovered/Resolved]
  - Conjunctivitis [Recovered/Resolved]
  - Keratitis [Recovered/Resolved]

NARRATIVE: CASE EVENT DATE: 20230201
